FAERS Safety Report 6523257-X (Version None)
Quarter: 2009Q4

REPORT INFORMATION
  Report Type: 
  Country: None (occurrence: None)
  Receive Date: 20091231
  Receipt Date: 20091222
  Transmission Date: 20100525
  Serious: Yes (Hospitalization)
  Sender: FDA-Public Use
  Company Number: US-BIOGENIDEC-2009BI042054

PATIENT
  Age: 59 Year
  Sex: Female

DRUGS (1)
  1. AVONEX [Suspect]
     Indication: MULTIPLE SCLEROSIS
     Route: 030
     Dates: start: 20010524, end: 20091202

REACTIONS (6)
  - CEREBRAL HAEMORRHAGE [None]
  - DIZZINESS [None]
  - HEADACHE [None]
  - HERNIA [None]
  - LOSS OF CONSCIOUSNESS [None]
  - NAUSEA [None]
